FAERS Safety Report 9686861 (Version 2)
Quarter: 2014Q1

REPORT INFORMATION
  Report Type: Report from Study
  Country: US (occurrence: US)
  Receive Date: 20131113
  Receipt Date: 20140116
  Transmission Date: 20141002
  Serious: Yes (Other)
  Sender: FDA-Public Use
  Company Number: US-US-EMD SERONO, INC.-7248559

PATIENT
  Age: 33 Year
  Sex: Male

DRUGS (5)
  1. REBIF [Suspect]
     Indication: PRODUCT USED FOR UNKNOWN INDICATION
     Route: 058
     Dates: start: 201010, end: 201110
  2. REBIF [Suspect]
     Route: 058
     Dates: start: 20120703, end: 20130629
  3. REBIF [Suspect]
     Route: 058
     Dates: start: 20130820, end: 201401
  4. CLONAZEPAM [Concomitant]
     Indication: ANXIETY
  5. FLUOXETINE [Concomitant]
     Indication: ANXIETY

REACTIONS (10)
  - Inguinal hernia [Unknown]
  - Convulsion [Recovered/Resolved]
  - Muscle spasticity [Not Recovered/Not Resolved]
  - Temperature intolerance [Unknown]
  - Gait disturbance [Unknown]
  - Gait disturbance [Unknown]
  - Musculoskeletal stiffness [Unknown]
  - Musculoskeletal stiffness [Unknown]
  - Headache [Unknown]
  - Injection site bruising [Unknown]
